FAERS Safety Report 11074808 (Version 1)
Quarter: 2015Q2

REPORT INFORMATION
  Report Type: Spontaneous
  Country: US (occurrence: None)
  Receive Date: 20150428
  Receipt Date: 20150428
  Transmission Date: 20150821
  Serious: No
  Sender: FDA-Public Use
  Company Number: None

PATIENT
  Age: 33 Year
  Sex: Female

DRUGS (2)
  1. MAKENA [Suspect]
     Active Substance: HYDROXYPROGESTERONE CAPROATE
     Indication: PREMATURE BABY
     Route: 030
     Dates: start: 20150324, end: 20150331
  2. MAKENA [Suspect]
     Active Substance: HYDROXYPROGESTERONE CAPROATE
     Route: 030
     Dates: start: 20150324, end: 20150331

REACTIONS (4)
  - Abdominal pain upper [None]
  - Pain in extremity [None]
  - Peripheral swelling [None]
  - Diarrhoea [None]

NARRATIVE: CASE EVENT DATE: 20150324
